FAERS Safety Report 13951530 (Version 1)
Quarter: 2017Q3

REPORT INFORMATION
  Report Type: Spontaneous
  Country: US (occurrence: US)
  Receive Date: 20170908
  Receipt Date: 20170908
  Transmission Date: 20171128
  Serious: No
  Sender: FDA-Public Use
  Company Number: US-JAZZ-2017-US-009524

PATIENT
  Sex: Female

DRUGS (62)
  1. SENNA LAXATIVE [Concomitant]
     Active Substance: SENNOSIDES
  2. VOLTAREN [Concomitant]
     Active Substance: DICLOFENAC SODIUM
  3. WELCHOL [Concomitant]
     Active Substance: COLESEVELAM HYDROCHLORIDE
  4. MAXALT [Concomitant]
     Active Substance: RIZATRIPTAN BENZOATE
  5. HYDROCODONE BITARTRATE AND ACETAMINOPHEN [Concomitant]
     Active Substance: ACETAMINOPHEN\HYDROCODONE BITARTRATE
  6. PRIMIDONE. [Concomitant]
     Active Substance: PRIMIDONE
  7. XYREM [Suspect]
     Active Substance: SODIUM OXYBATE
     Indication: CATAPLEXY
     Dosage: DOSE ADJUSTMENT
     Route: 048
     Dates: start: 200710, end: 201310
  8. XYREM [Suspect]
     Active Substance: SODIUM OXYBATE
     Dosage: 4.5 G, BID
     Route: 048
     Dates: start: 201310
  9. REGLAN [Concomitant]
     Active Substance: METOCLOPRAMIDE HYDROCHLORIDE
  10. CLONAZEPAM. [Concomitant]
     Active Substance: CLONAZEPAM
  11. LOMOTIL [Concomitant]
     Active Substance: ATROPINE SULFATE\DIPHENOXYLATE HYDROCHLORIDE
  12. OSCIMIN [Concomitant]
     Active Substance: HYOSCYAMINE SULFATE
  13. HYDROMORPHONE HCL [Concomitant]
     Active Substance: HYDROMORPHONE HYDROCHLORIDE
  14. LOMOTIL [Concomitant]
     Active Substance: ATROPINE SULFATE\DIPHENOXYLATE HYDROCHLORIDE
  15. PROTONIX                           /00661201/ [Concomitant]
     Active Substance: OMEPRAZOLE
  16. CROMOLYN                           /00082101/ [Concomitant]
  17. LEXAPRO [Concomitant]
     Active Substance: ESCITALOPRAM OXALATE
  18. METHYLPHENIDATE. [Concomitant]
     Active Substance: METHYLPHENIDATE
  19. BISOPROLOL FUMARATE. [Concomitant]
     Active Substance: BISOPROLOL FUMARATE
  20. MIRALAX [Concomitant]
     Active Substance: POLYETHYLENE GLYCOL 3350
  21. VITAMIN C [Concomitant]
     Active Substance: ASCORBIC ACID
  22. MORPHINE SULF [Concomitant]
     Active Substance: MORPHINE SULFATE
  23. FLORINEF ACETATE [Concomitant]
     Active Substance: FLUDROCORTISONE ACETATE
  24. PREDNISONE. [Concomitant]
     Active Substance: PREDNISONE
  25. ERGOCALCIFEROL. [Concomitant]
     Active Substance: ERGOCALCIFEROL
  26. FLUDROCORTISONE [Concomitant]
     Active Substance: FLUDROCORTISONE
  27. SUMATRIPTAN. [Concomitant]
     Active Substance: SUMATRIPTAN
  28. FOCALIN [Concomitant]
     Active Substance: DEXMETHYLPHENIDATE HYDROCHLORIDE
  29. XANAX [Concomitant]
     Active Substance: ALPRAZOLAM
  30. BUTRANS [Concomitant]
     Active Substance: BUPRENORPHINE
  31. MODAFINIL. [Concomitant]
     Active Substance: MODAFINIL
  32. SODIUM CHLORIDE. [Concomitant]
     Active Substance: SODIUM CHLORIDE
  33. BUSPAR [Concomitant]
     Active Substance: BUSPIRONE HYDROCHLORIDE
  34. ZEBETA [Concomitant]
     Active Substance: BISOPROLOL FUMARATE
  35. OXYCODONE AND ACETAMINOPHEN [Concomitant]
     Active Substance: ACETAMINOPHEN\OXYCODONE HYDROCHLORIDE
  36. KETOCONAZOLE. [Concomitant]
     Active Substance: KETOCONAZOLE
  37. LOTRONEX [Concomitant]
     Active Substance: ALOSETRON HYDROCHLORIDE
  38. XYREM [Suspect]
     Active Substance: SODIUM OXYBATE
     Indication: NARCOLEPSY
     Dosage: 3.75 G, BID
     Route: 048
     Dates: start: 200406, end: 200709
  39. DIAZEPAM. [Concomitant]
     Active Substance: DIAZEPAM
  40. IMITREX [Concomitant]
     Active Substance: SUMATRIPTAN SUCCINATE
  41. PERCOCET                           /00446701/ [Concomitant]
     Active Substance: ACETAMINOPHEN\OXYCODONE HYDROCHLORIDE\OXYCODONE TEREPHTHALATE
  42. LAMOTRIGINE. [Concomitant]
     Active Substance: LAMOTRIGINE
  43. CYCLOBENZAPRINE. [Concomitant]
     Active Substance: CYCLOBENZAPRINE
  44. DIPHENOXYLATE/ATROPINE [Concomitant]
     Active Substance: ATROPINE\DIPHENOXYLATE
  45. FENTANYL. [Concomitant]
     Active Substance: FENTANYL
  46. CLONIDINE. [Suspect]
     Active Substance: CLONIDINE
     Indication: PRODUCT USED FOR UNKNOWN INDICATION
  47. GABAPENTIN. [Concomitant]
     Active Substance: GABAPENTIN
  48. NAPROXEN. [Concomitant]
     Active Substance: NAPROXEN
  49. NIZORAL [Concomitant]
     Active Substance: KETOCONAZOLE
  50. BENADRYL ALLERGY [Concomitant]
     Active Substance: DIPHENHYDRAMINE HYDROCHLORIDE
  51. MICROGESTIN FE [Concomitant]
     Active Substance: ETHINYL ESTRADIOL\FERROUS FUMARATE\NORETHINDRONE ACETATE
  52. PYRIDOSTIGMINE BR [Concomitant]
  53. VYVANSE [Concomitant]
     Active Substance: LISDEXAMFETAMINE DIMESYLATE
  54. MOBIC [Concomitant]
     Active Substance: MELOXICAM
  55. NUCYNTA [Concomitant]
     Active Substance: TAPENTADOL HYDROCHLORIDE
  56. TRAMADOL HCL [Concomitant]
     Active Substance: TRAMADOL HYDROCHLORIDE
  57. ROBAXIN [Concomitant]
     Active Substance: METHOCARBAMOL
  58. CROMOLYN SODIUM. [Concomitant]
     Active Substance: CROMOLYN SODIUM
  59. DULOXETINE HCL [Concomitant]
     Active Substance: DULOXETINE HYDROCHLORIDE
  60. MESTINON [Concomitant]
     Active Substance: PYRIDOSTIGMINE BROMIDE
  61. ONDANSETRON HCL [Concomitant]
     Active Substance: ONDANSETRON HYDROCHLORIDE
  62. TIZANIDINE HCL [Concomitant]
     Active Substance: TIZANIDINE HYDROCHLORIDE

REACTIONS (3)
  - Malaise [Unknown]
  - Dizziness [Unknown]
  - Feeling drunk [Unknown]
